FAERS Safety Report 10542978 (Version 1)
Quarter: 2014Q4

REPORT INFORMATION
  Report Type: Spontaneous
  Country: FR (occurrence: FR)
  Receive Date: 20141027
  Receipt Date: 20141027
  Transmission Date: 20150529
  Serious: Yes (Other)
  Sender: FDA-Public Use
  Company Number: FR-JNJFOC-20141014518

PATIENT

DRUGS (1)
  1. INFLIXIMAB, RECOMBINANT [Suspect]
     Active Substance: INFLIXIMAB
     Indication: PSORIATIC ARTHROPATHY
     Dosage: 3 TO 5 MG/KG EVERY 6 TO 8 WEEKS
     Route: 042

REACTIONS (7)
  - Cardiac disorder [Unknown]
  - Skin lesion [Unknown]
  - Hepatocellular injury [Unknown]
  - Neoplasm [Unknown]
  - Infection [Unknown]
  - Drug ineffective [Unknown]
  - Psoriasis [Unknown]
